FAERS Safety Report 9215341 (Version 1)
Quarter: 2013Q2

REPORT INFORMATION
  Report Type: Spontaneous
  Country: US (occurrence: US)
  Receive Date: 20130405
  Receipt Date: 20130405
  Transmission Date: 20140414
  Serious: Yes (Other)
  Sender: FDA-Public Use
  Company Number: US-ABBOTT-13P-163-1071321-00

PATIENT
  Age: 55 Year
  Sex: Male
  Weight: 64.47 kg

DRUGS (9)
  1. DEPAKOTE [Suspect]
     Indication: PRODUCT USED FOR UNKNOWN INDICATION
  2. VALPROIC ACID [Suspect]
     Indication: PRODUCT USED FOR UNKNOWN INDICATION
  3. VALPROIC ACID [Suspect]
     Dates: start: 20120413
  4. ONFI [Suspect]
     Indication: EPILEPSY
     Route: 048
     Dates: start: 20120823
  5. ONFI [Suspect]
  6. FELBATOL [Concomitant]
     Indication: PRODUCT USED FOR UNKNOWN INDICATION
     Dosage: 1500MG QAM, 1800MG QPM
  7. LEVOTHYROXINE [Concomitant]
  8. RUFINAMIDE [Concomitant]
     Indication: PRODUCT USED FOR UNKNOWN INDICATION
  9. LEVETIRACETAM [Concomitant]
     Indication: PRODUCT USED FOR UNKNOWN INDICATION

REACTIONS (8)
  - Convulsion [Unknown]
  - Petit mal epilepsy [Unknown]
  - Cognitive disorder [Unknown]
  - Loss of consciousness [Unknown]
  - Somnolence [Unknown]
  - Musculoskeletal stiffness [Unknown]
  - Oedema peripheral [Unknown]
  - Weight increased [Unknown]
